FAERS Safety Report 6235459-0 (Version None)
Quarter: 2009Q2

REPORT INFORMATION
  Report Type: 
  Country: None (occurrence: None)
  Receive Date: 20090615
  Receipt Date: 20090605
  Transmission Date: 20091009
  Serious: Yes (Other)
  Sender: FDA-Public Use
  Company Number: 1000006120

PATIENT
  Age: 27 Year
  Sex: Female

DRUGS (12)
  1. ESCITALOPRAM [Suspect]
     Dosage: 10 MG (10 MG, 1 IN 1 D), ORAL
     Route: 048
     Dates: start: 20081218
  2. ATARAX [Suspect]
     Dosage: 137.5 MG (137.5 MG, 1 IN 1 D), ORAL; 87.5 MG (87.5 MG, 1 IN 1 D), ORAL
     Route: 048
     Dates: start: 20081209, end: 20081211
  3. ATARAX [Suspect]
     Dosage: 137.5 MG (137.5 MG, 1 IN 1 D), ORAL; 87.5 MG (87.5 MG, 1 IN 1 D), ORAL
     Route: 048
     Dates: start: 20081212
  4. AGRIPPAL [Suspect]
     Dosage: 1 DOSAGE FORMS (1 DOSAGE FORMS, ONCE)
     Dates: start: 20090112, end: 20090112
  5. TOPALGIC [Suspect]
     Dosage: 300 TO 400 MG DAILY (1 IN 1 D), ORAL
     Route: 048
     Dates: start: 20081208, end: 20090120
  6. TOPALGIC [Suspect]
     Dosage: 300 MG (300 MG, 1 IN 1 D), ORAL; 350 MG (350 MG, 1 IN 1 D), ORAL
     Route: 048
     Dates: start: 20081203, end: 20081207
  7. TOPALGIC [Suspect]
     Dosage: 300 MG (300 MG, 1 IN 1 D), ORAL; 350 MG (350 MG, 1 IN 1 D), ORAL
     Route: 048
     Dates: start: 20090204
  8. LAROXYL (SOLUTION) [Suspect]
     Dosage: 15 MG (5 MG, 3 IN 1 D), ORAL
     Route: 048
     Dates: start: 20081208
  9. LOVENOX [Concomitant]
  10. ASPEGIC 1000 [Concomitant]
  11. ZOLPIDEM TARTRATE [Concomitant]
  12. ORACILLINE [Concomitant]

REACTIONS (1)
  - EPILEPSY [None]
